FAERS Safety Report 10290291 (Version 2)
Quarter: 2014Q3

REPORT INFORMATION
  Report Type: Report from Study
  Country: AU (occurrence: AU)
  Receive Date: 20140710
  Receipt Date: 20140811
  Transmission Date: 20150326
  Serious: Yes (Hospitalization, Other)
  Sender: FDA-Public Use
  Company Number: AU-BAYER-2014-100425

PATIENT
  Age: 59 Year
  Sex: Male

DRUGS (15)
  1. ASPIRIN. [Concomitant]
     Active Substance: ASPIRIN
     Indication: MYOCARDIAL ISCHAEMIA
     Dosage: 1 DF, QD WITH MEALS
     Route: 048
  2. IMODIUM [Concomitant]
     Active Substance: LOPERAMIDE HYDROCHLORIDE
     Dosage: 1 DF, PRN
     Route: 048
  3. BETAFERON [Suspect]
     Active Substance: INTERFERON BETA-1B
     Indication: MULTIPLE SCLEROSIS
     Dosage: 250 ?G/ML, QOD
     Route: 058
     Dates: start: 19980801
  4. SOFRAMYCIN EYE [Concomitant]
     Dosage: 1-2 DROPS IF REQUIRED
     Route: 047
  5. ATACAND [Concomitant]
     Active Substance: CANDESARTAN CILEXETIL
     Indication: HYPERTENSION
     Dosage: 1 DF, QD
     Route: 048
  6. LASIX [Concomitant]
     Active Substance: FUROSEMIDE
     Dosage: 1 DF, IN THE MORNING
     Route: 048
  7. METOPROLOL TARTRATE. [Concomitant]
     Active Substance: METOPROLOL TARTRATE
     Dosage: 25 MG, BID
     Route: 048
  8. PANADOL [Concomitant]
     Active Substance: ACETAMINOPHEN
     Dosage: 2 DF, TID
     Route: 048
  9. SPIRONOLACTONE. [Concomitant]
     Active Substance: SPIRONOLACTONE
     Dosage: 1 DF, QD
     Route: 048
  10. PANAMAX [Concomitant]
     Active Substance: ACETAMINOPHEN
     Dosage: 1 DF, PRN
     Route: 048
  11. REFRESH [POLYVIDONE,POLYVINYL ALCOHOL] [Concomitant]
     Dosage: 1-2 DROPS, PRN
     Route: 047
  12. CADUET [Concomitant]
     Active Substance: AMLODIPINE BESYLATE\ATORVASTATIN CALCIUM
     Dosage: 1 DF, AT NOCTE
     Route: 048
  13. NEXIUM [Concomitant]
     Active Substance: ESOMEPRAZOLE MAGNESIUM
     Dosage: 1 DF, IN THE MORNING BEFORE MEAL
     Route: 048
  14. NITRO-DUR [Concomitant]
     Active Substance: NITROGLYCERIN
     Dosage: 1 QD
     Route: 062
  15. NITROLINGUAL [Concomitant]
     Active Substance: NITROGLYCERIN
     Dosage: 400 MCG/DOSE, 1 SPRAY EVERY 5 MINUTES X3
     Route: 060

REACTIONS (5)
  - Coronary artery occlusion [Unknown]
  - Gait disturbance [Unknown]
  - Joint stiffness [Unknown]
  - Coronary artery bypass [Unknown]
  - Influenza like illness [Unknown]

NARRATIVE: CASE EVENT DATE: 2001
